FAERS Safety Report 5219001-9 (Version None)
Quarter: 2007Q1

REPORT INFORMATION
  Report Type: 
  Country: None (occurrence: None)
  Receive Date: 20070125
  Receipt Date: 20070117
  Transmission Date: 20070707
  Serious: Yes (Other)
  Sender: FDA-Public Use
  Company Number: US-ROCHE-478703

PATIENT
  Age: 17 Year
  Sex: Male

DRUGS (1)
  1. ACCUTANE [Suspect]
     Indication: DRUG USE FOR UNKNOWN INDICATION
     Dosage: PATIENT TOOK ACCUTANE 4 YEARS AGO.
     Route: 065
     Dates: start: 20030615

REACTIONS (2)
  - ANGER [None]
  - SUICIDE ATTEMPT [None]
